FAERS Safety Report 6583834-7 (Version None)
Quarter: 2010Q1

REPORT INFORMATION
  Report Type: 
  Country: None (occurrence: None)
  Receive Date: 20100216
  Receipt Date: 20091216
  Transmission Date: 20100710
  Serious: No
  Sender: FDA-Public Use
  Company Number: US-ABBOTT-09P-163-0559287-00

PATIENT
  Sex: Male
  Weight: 90.346 kg

DRUGS (5)
  1. SIMCOR [Suspect]
     Indication: HYPERLIPIDAEMIA
     Dosage: 500MG/20MG
     Route: 048
  2. LEVOXYL [Concomitant]
     Indication: DRUG USE FOR UNKNOWN INDICATION
     Route: 048
  3. ASPIRIN [Concomitant]
     Indication: DRUG USE FOR UNKNOWN INDICATION
     Route: 048
  4. UNKNOWN MEDICATION FOR THYROID [Concomitant]
     Indication: THYROID DISORDER
  5. UNKNOWN MEDICATION FOR DEPRESSION [Concomitant]
     Indication: DEPRESSION

REACTIONS (1)
  - FLUSHING [None]
